FAERS Safety Report 4873285-5 (Version None)
Quarter: 2006Q1

REPORT INFORMATION
  Report Type: 
  Country: None (occurrence: None)
  Receive Date: 20060105
  Receipt Date: 20051214
  Transmission Date: 20060701
  Serious: Yes (Hospitalization)
  Sender: FDA-Public Use
  Company Number: FR-SANOFI-SYNTHELABO-F01200502776

PATIENT
  Sex: Male
  Weight: 88 kg

DRUGS (8)
  1. FLUOROURACIL [Suspect]
     Indication: OESOPHAGEAL CARCINOMA
     Route: 042
     Dates: start: 20051208, end: 20051211
  2. CISPLATIN [Suspect]
     Route: 042
     Dates: start: 20051208, end: 20051208
  3. RADIOTHERAPY [Concomitant]
     Indication: OESOPHAGEAL CARCINOMA
     Dosage: TOTAL DOSE OF FRACTION ADMINISTERED BEFORE SAE: 45 GY
     Route: 050
     Dates: start: 20051107, end: 20051213
  4. ALLOPURINOL [Concomitant]
  5. KENZEN [Concomitant]
  6. SUCRALFATE [Concomitant]
  7. RAMILEX [Concomitant]
  8. TRIFLUCAN [Concomitant]

REACTIONS (3)
  - HYPERCREATININAEMIA [None]
  - OESOPHAGITIS [None]
  - PYREXIA [None]
